FAERS Safety Report 10304541 (Version 1)
Quarter: 2014Q3

REPORT INFORMATION
  Report Type: Report from Study
  Country: US (occurrence: US)
  Receive Date: 20140715
  Receipt Date: 20140715
  Transmission Date: 20150326
  Serious: Yes (Hospitalization)
  Sender: FDA-Public Use
  Company Number: US-BIOGENIDEC-2014BI069055

PATIENT
  Age: 62 Year
  Sex: Female

DRUGS (3)
  1. TYSABRI [Concomitant]
     Active Substance: NATALIZUMAB
     Indication: MULTIPLE SCLEROSIS
     Route: 042
     Dates: start: 20120222, end: 20121001
  2. TYSABRI [Concomitant]
     Active Substance: NATALIZUMAB
     Indication: MULTIPLE SCLEROSIS
     Route: 042
     Dates: start: 20140619
  3. AVONEX [Suspect]
     Active Substance: INTERFERON BETA-1A
     Indication: MULTIPLE SCLEROSIS
     Route: 030

REACTIONS (5)
  - Osteoporosis [Not Recovered/Not Resolved]
  - Limb injury [Recovered/Resolved]
  - Femur fracture [Recovered/Resolved]
  - Fall [Recovered/Resolved]
  - Hip fracture [Recovered/Resolved]

NARRATIVE: CASE EVENT DATE: 2014
